FAERS Safety Report 23186083 (Version 1)
Quarter: 2023Q4

REPORT INFORMATION
  Report Type: Report from Study
  Country: CL (occurrence: CL)
  Receive Date: 20231115
  Receipt Date: 20231115
  Transmission Date: 20240109
  Serious: Yes (Other)
  Sender: FDA-Public Use
  Company Number: CL-002147023-PHHY2017CL083742

PATIENT
  Age: 47 Year
  Sex: Male
  Weight: 75 kg

DRUGS (15)
  1. COSENTYX [Suspect]
     Active Substance: SECUKINUMAB
     Indication: Ankylosing spondylitis
     Dosage: 150 MG, QMO
     Route: 030
     Dates: start: 20161205
  2. COSENTYX [Suspect]
     Active Substance: SECUKINUMAB
     Indication: Psoriatic arthropathy
     Dosage: 150 MG, QMO
     Route: 058
     Dates: start: 2017, end: 201711
  3. COSENTYX [Suspect]
     Active Substance: SECUKINUMAB
     Dosage: 150 MG
     Route: 058
     Dates: start: 20190801
  4. COSENTYX [Suspect]
     Active Substance: SECUKINUMAB
     Dosage: 150 MG, QMO
     Route: 058
     Dates: start: 20190801
  5. COSENTYX [Suspect]
     Active Substance: SECUKINUMAB
     Dosage: 150 MG
     Route: 058
     Dates: start: 20210101
  6. COSENTYX [Suspect]
     Active Substance: SECUKINUMAB
     Dosage: 150 MG
     Route: 058
     Dates: start: 20210128
  7. COSENTYX [Suspect]
     Active Substance: SECUKINUMAB
     Dosage: 300 MG, QMO
     Route: 058
  8. COSENTYX [Suspect]
     Active Substance: SECUKINUMAB
     Dosage: 300 MG, QMO
     Route: 058
     Dates: start: 20231025
  9. KETOROLAC [Concomitant]
     Active Substance: KETOROLAC TROMETHAMINE
     Indication: Psoriatic arthropathy
     Dosage: UNK
     Route: 048
  10. KETOROLAC [Concomitant]
     Active Substance: KETOROLAC TROMETHAMINE
     Indication: Pain
     Dosage: UNK
     Route: 065
  11. KETOROLAC [Concomitant]
     Active Substance: KETOROLAC TROMETHAMINE
     Indication: Inflammation
  12. CELEBRA [Concomitant]
     Active Substance: CELECOXIB
     Indication: Psoriatic arthropathy
     Dosage: UNK
     Route: 048
  13. CELEBRA [Concomitant]
     Active Substance: CELECOXIB
     Indication: Pain
     Dosage: UNK
     Route: 065
  14. CELEBRA [Concomitant]
     Active Substance: CELECOXIB
     Indication: Inflammation
  15. REMICADE [Concomitant]
     Active Substance: INFLIXIMAB
     Indication: Product used for unknown indication
     Route: 065

REACTIONS (18)
  - Autoimmune disorder [Unknown]
  - Malaise [Not Recovered/Not Resolved]
  - Arthralgia [Not Recovered/Not Resolved]
  - Sacral pain [Not Recovered/Not Resolved]
  - Musculoskeletal stiffness [Unknown]
  - Spinal pain [Not Recovered/Not Resolved]
  - Neck pain [Unknown]
  - Muscle spasms [Unknown]
  - Insomnia [Not Recovered/Not Resolved]
  - Anxiety [Unknown]
  - Musculoskeletal discomfort [Unknown]
  - Bone disorder [Unknown]
  - Arthritis [Recovering/Resolving]
  - Pain in extremity [Not Recovered/Not Resolved]
  - Psoriasis [Unknown]
  - Pruritus [Unknown]
  - Incorrect route of product administration [Unknown]
  - Drug ineffective [Unknown]

NARRATIVE: CASE EVENT DATE: 20161205
